FAERS Safety Report 7551480-4 (Version None)
Quarter: 2011Q2

REPORT INFORMATION
  Report Type: 
  Country: None (occurrence: None)
  Receive Date: 20110616
  Receipt Date: 20110603
  Transmission Date: 20111010
  Serious: Yes (Other)
  Sender: FDA-Public Use
  Company Number: PHHY2011BR48843

PATIENT
  Sex: Female
  Weight: 65 kg

DRUGS (1)
  1. RASILEZ [Suspect]
     Indication: HYPERTENSION
     Route: 048

REACTIONS (3)
  - ANGINA PECTORIS [None]
  - INFARCTION [None]
  - BLOOD PRESSURE INCREASED [None]
